FAERS Safety Report 17511411 (Version 2)
Quarter: 2020Q1

REPORT INFORMATION
  Report Type: Spontaneous
  Country: FR (occurrence: FR)
  Receive Date: 20200306
  Receipt Date: 20200312
  Transmission Date: 20200409
  Serious: Yes (Hospitalization)
  Sender: FDA-Public Use
  Company Number: FR-US-PROVELL PHARMACEUTICALS LLC-E2B_90075380

PATIENT
  Age: 85 Year
  Sex: Female

DRUGS (2)
  1. LEVOTHYROX [Suspect]
     Active Substance: LEVOTHYROXINE
     Indication: THYROID DISORDER
     Dosage: 100 OR 75 MCG (EXACT DOSAGE UNKNOWN)
     Dates: end: 2020
  2. PLAVIX [Concomitant]
     Active Substance: CLOPIDOGREL BISULFATE
     Indication: PRODUCT USED FOR UNKNOWN INDICATION
     Dates: end: 2020

REACTIONS (6)
  - Confusional state [Unknown]
  - Ill-defined disorder [Unknown]
  - Hemiplegia [Unknown]
  - Vitamin D deficiency [Unknown]
  - Fall [Unknown]
  - Glioblastoma [Unknown]

NARRATIVE: CASE EVENT DATE: 201912
